FAERS Safety Report 7112115-8 (Version None)
Quarter: 2010Q4

REPORT INFORMATION
  Report Type: 
  Country: None (occurrence: None)
  Receive Date: 20101119
  Receipt Date: 20091203
  Transmission Date: 20110411
  Serious: No
  Sender: FDA-Public Use
  Company Number: A0816983A

PATIENT
  Age: 80 Year
  Sex: Male
  Weight: 90.9 kg

DRUGS (8)
  1. AVODART [Suspect]
     Indication: BENIGN PROSTATIC HYPERPLASIA
     Route: 048
  2. PLAVIX [Concomitant]
     Indication: PLATELET DISORDER
     Dosage: 75MG PER DAY
  3. LEVOTHYROXINE SODIUM [Concomitant]
     Indication: THYROID DISORDER
     Dosage: 50MCG PER DAY
  4. COLCHICINE [Concomitant]
     Indication: GOUT
     Dosage: .6MG AS REQUIRED
  5. HYDROCHLOROTHIAZIDE [Concomitant]
     Indication: HYPERTENSION
     Dosage: 12.5MG PER DAY
  6. LISINOPRIL [Concomitant]
     Dosage: 20MG PER DAY
  7. ALLOPURINOL [Concomitant]
     Indication: GOUT
     Dosage: 300MG PER DAY
  8. UNKNOWN MEDICATION [Concomitant]

REACTIONS (1)
  - DYSPNOEA [None]
